FAERS Safety Report 5615642-5 (Version None)
Quarter: 2008Q1

REPORT INFORMATION
  Report Type: 
  Country: None (occurrence: None)
  Receive Date: 20080206
  Receipt Date: 20080130
  Transmission Date: 20080703
  Serious: Yes (Death)
  Sender: FDA-Public Use
  Company Number: B0506618A

PATIENT
  Age: 77 Year
  Sex: Male

DRUGS (7)
  1. AVANDIA [Suspect]
     Indication: DRUG USE FOR UNKNOWN INDICATION
     Dosage: 4MG PER DAY
     Route: 065
     Dates: start: 20060801
  2. METFORMIN HCL [Concomitant]
     Dosage: 2G PER DAY
  3. INSULIN [Concomitant]
  4. PRIMASPAN [Concomitant]
  5. CARDACE [Concomitant]
  6. ORMOX [Concomitant]
  7. LIPITOR [Concomitant]
     Route: 065

REACTIONS (3)
  - DEATH [None]
  - DYSPNOEA [None]
  - PULMONARY OEDEMA [None]
